FAERS Safety Report 20517586 (Version 2)
Quarter: 2022Q1

REPORT INFORMATION
  Report Type: Spontaneous
  Country: JP (occurrence: JP)
  Receive Date: 20220225
  Receipt Date: 20220318
  Transmission Date: 20220423
  Serious: Yes (Congenital Anomaly)
  Sender: FDA-Public Use
  Company Number: JP-MYLANLABS-2022M1013736

PATIENT
  Sex: Male

DRUGS (7)
  1. ERYTHROMYCIN [Suspect]
     Active Substance: ERYTHROMYCIN
     Indication: Premature rupture of membranes
     Dosage: 500 MG EVERY 8 HOURS
     Route: 065
  2. ERYTHROMYCIN [Suspect]
     Active Substance: ERYTHROMYCIN
     Dosage: 500 MG EVERY 8 HOURS
     Route: 065
  3. AMPICILLIN [Concomitant]
     Active Substance: AMPICILLIN
     Indication: Premature rupture of membranes
     Dosage: 1 G EVERY 6 HOURS
     Route: 065
  4. AMPICILLIN [Concomitant]
     Active Substance: AMPICILLIN
     Dosage: 1 G EVERY 6 HOURS
     Route: 065
  5. BETAMETHASONE [Concomitant]
     Active Substance: BETAMETHASONE
     Indication: Infection
     Route: 065
  6. RITODRINE HYDROCHLORIDE [Concomitant]
     Active Substance: RITODRINE HYDROCHLORIDE
     Indication: Uterine contractions abnormal
     Route: 041
  7. MAGNESIUM SULFATE HEPTAHYDRATE [Concomitant]
     Active Substance: MAGNESIUM SULFATE HEPTAHYDRATE
     Indication: Uterine contractions abnormal
     Route: 065

REACTIONS (5)
  - Osteogenesis imperfecta [Unknown]
  - Bone formation decreased [Unknown]
  - Developmental hip dysplasia [Unknown]
  - Dyspnoea [Recovered/Resolved]
  - Foetal exposure during pregnancy [Recovered/Resolved]
